FAERS Safety Report 7038708-4 (Version None)
Quarter: 2010Q4

REPORT INFORMATION
  Report Type: 
  Country: None (occurrence: None)
  Receive Date: 20101012
  Receipt Date: 20100930
  Transmission Date: 20110411
  Serious: Yes (Other)
  Sender: FDA-Public Use
  Company Number: DE-RANBAXY-2010US-38504

PATIENT

DRUGS (17)
  1. ACETAMINOPHEN [Suspect]
     Indication: PRODUCT USED FOR UNKNOWN INDICATION
     Dosage: 1 G, QID
     Route: 048
     Dates: start: 20100614, end: 20100618
  2. EUPANTOL [Suspect]
     Indication: PRODUCT USED FOR UNKNOWN INDICATION
     Dosage: 40 MG, UNK
     Route: 048
     Dates: start: 20100614
  3. LYSODREN [Suspect]
     Indication: ADRENOCORTICAL CARCINOMA
     Dosage: 500 MG, 4 DOSAGE FORMS
     Route: 048
     Dates: start: 20100604, end: 20100617
  4. LYSODREN [Suspect]
     Dosage: UNK, UNK
     Route: 048
     Dates: start: 20100618, end: 20100723
  5. ZOFRAN [Suspect]
     Indication: PRODUCT USED FOR UNKNOWN INDICATION
     Dosage: 4 MG, 2 DOSAGE FORMS
     Route: 048
     Dates: start: 20100614
  6. LEXOMIL [Suspect]
     Indication: PRODUCT USED FOR UNKNOWN INDICATION
     Dosage: 0.5 DOSAGE FORM
     Route: 048
     Dates: start: 20100614
  7. ZOLPIDEM TARTRATE [Suspect]
     Indication: PRODUCT USED FOR UNKNOWN INDICATION
     Dosage: 10 MG, UNK
     Route: 048
     Dates: start: 20100614
  8. HYDROCORTISONE [Suspect]
     Indication: PRODUCT USED FOR UNKNOWN INDICATION
     Dosage: 100 MG THEN PROGRESSIVE DECREASE
     Route: 048
     Dates: start: 20100614
  9. ULTRALEVURE [Suspect]
     Indication: PRODUCT USED FOR UNKNOWN INDICATION
     Dosage: 3 DOSAGE FORMS
     Route: 048
     Dates: start: 20100614
  10. LOVENOX [Concomitant]
     Indication: PRODUCT USED FOR UNKNOWN INDICATION
     Dosage: UNK
     Route: 058
  11. INNOHEP [Concomitant]
     Indication: PRODUCT USED FOR UNKNOWN INDICATION
     Dosage: UNK, UNK
     Route: 058
  12. AUGMENTIN '125' [Concomitant]
     Indication: PRODUCT USED FOR UNKNOWN INDICATION
     Dosage: 1 G, TID
     Route: 048
     Dates: start: 20100714, end: 20100716
  13. AUGMENTIN '125' [Concomitant]
     Dosage: 1 G, BID
     Route: 048
     Dates: start: 20100717, end: 20100721
  14. SPASFON [Concomitant]
     Indication: PRODUCT USED FOR UNKNOWN INDICATION
     Dosage: 6 DOSAGE FORMS (2 DOSAGE FORMS, 3 IN 1 D)
     Route: 048
     Dates: start: 20100614, end: 20100621
  15. PRIMPERAN [Concomitant]
     Indication: PRODUCT USED FOR UNKNOWN INDICATION
     Dosage: UNK
     Route: 048
     Dates: start: 20100618
  16. DEBRIDAT [Concomitant]
     Indication: PRODUCT USED FOR UNKNOWN INDICATION
     Dosage: 2 DOSAGE FORMS (1 DOSAGE FORM, 2 IN 1 D)
     Route: 048
     Dates: start: 20100618
  17. ESTRO-PROGESTIN CONTRACEPTIVE [Concomitant]
     Indication: CONTRACEPTION
     Dosage: UNK, UNK
     Route: 065

REACTIONS (2)
  - CONDITION AGGRAVATED [None]
  - CYTOLYTIC HEPATITIS [None]
